FAERS Safety Report 11865912 (Version 6)
Quarter: 2016Q4

REPORT INFORMATION
  Report Type: Report from Study
  Country: US (occurrence: US)
  Receive Date: 20151223
  Receipt Date: 20161124
  Transmission Date: 20170206
  Serious: Yes (Hospitalization)
  Sender: FDA-Public Use
  Company Number: US-BIOGEN-2015BI158995

PATIENT
  Age: 67 Year
  Sex: Female

DRUGS (2)
  1. TYSABRI [Suspect]
     Active Substance: NATALIZUMAB
     Route: 042
     Dates: start: 20120601
  2. TYSABRI [Suspect]
     Active Substance: NATALIZUMAB
     Indication: MULTIPLE SCLEROSIS
     Dosage: INFUSED OVER 1 HOUR
     Route: 042
     Dates: start: 20120724

REACTIONS (9)
  - Tendon disorder [Not Recovered/Not Resolved]
  - Fall [Recovered/Resolved]
  - Musculoskeletal disorder [Not Recovered/Not Resolved]
  - Ankle fracture [Recovered/Resolved]
  - Ligament disorder [Not Recovered/Not Resolved]
  - Device loosening [Not Recovered/Not Resolved]
  - Accident [Recovered/Resolved]
  - Arthritis [Not Recovered/Not Resolved]
  - Foot fracture [Not Recovered/Not Resolved]

NARRATIVE: CASE EVENT DATE: 201510
